FAERS Safety Report 5223250-3 (Version None)
Quarter: 2007Q1

REPORT INFORMATION
  Report Type: 
  Country: None (occurrence: None)
  Receive Date: 20070125
  Receipt Date: 20070114
  Transmission Date: 20070707
  Serious: Yes (Hospitalization)
  Sender: FDA-Public Use
  Company Number: 2007VX000123

PATIENT
  Sex: Male

DRUGS (1)
  1. ADVAFERON [Suspect]
     Indication: HEPATITIS C
     Dosage: 18 MIU; QD; SC
     Route: 058
     Dates: start: 20061121

REACTIONS (1)
  - ANGINA PECTORIS [None]
